FAERS Safety Report 8159595-7 (Version None)
Quarter: 2012Q1

REPORT INFORMATION
  Report Type: 
  Country: None (occurrence: None)
  Receive Date: 20120223
  Receipt Date: 20120216
  Transmission Date: 20120608
  Serious: Yes (Hospitalization)
  Sender: FDA-Public Use
  Company Number: FR-ROCHE-1041076

PATIENT
  Sex: Male

DRUGS (4)
  1. MABTHERA [Suspect]
     Indication: KIDNEY TRANSPLANT REJECTION
     Route: 042
     Dates: start: 20111220, end: 20111220
  2. MYCOPHENOLATE MOFETIL (CELLCEPT) [Concomitant]
     Route: 048
     Dates: start: 20111221
  3. PROGRAF [Concomitant]
     Route: 048
     Dates: start: 20111221
  4. PRIVIGEN [Suspect]
     Indication: KIDNEY TRANSPLANT REJECTION
     Dosage: 5 MG, 10 MG
     Route: 042
     Dates: start: 20111221, end: 20120119

REACTIONS (1)
  - HAEMOLYTIC ANAEMIA [None]
